FAERS Safety Report 12949081 (Version 1)
Quarter: 2016Q4

REPORT INFORMATION
  Report Type: Spontaneous
  Country: US (occurrence: US)
  Receive Date: 20161117
  Receipt Date: 20161117
  Transmission Date: 20170207
  Serious: No
  Sender: FDA-Public Use
  Company Number: US-PFIZER INC-2016016378

PATIENT
  Age: 84 Year
  Sex: Female
  Weight: 48.53 kg

DRUGS (23)
  1. LOVENOX [Concomitant]
     Active Substance: ENOXAPARIN SODIUM
     Dosage: 0.5 ML, 1X/DAY (60 MG/0.6 ML SYRG)
     Route: 058
  2. METOPROLOL. [Concomitant]
     Active Substance: METOPROLOL
     Dosage: 100 MG, DAILY [50 MG; TWO A DAY]
  3. TIKOSYN [Suspect]
     Active Substance: DOFETILIDE
     Indication: CARDIAC DISORDER
     Dosage: 125 UG, 2X/DAY (TAKE ONE BY MOUTH Q12 HR)
     Route: 048
  4. VOLTAREN [Concomitant]
     Active Substance: DICLOFENAC SODIUM
     Dosage: UNK UNK, AS NEEDED  (1 % GEL, TWICE DAILY AS NEEDED)
     Route: 061
  5. COUMADIN [Concomitant]
     Active Substance: WARFARIN SODIUM
     Dosage: 5 MG, DAILY [EXCEPT 1 AND 1/2 TABLETS ON THUR]
     Route: 048
  6. COUMADIN [Concomitant]
     Active Substance: WARFARIN SODIUM
     Dosage: 7.5 MG, UNK [5 MG; 1 AND 1/2 TABLETS ON THUR AS DIRECTED]
     Route: 048
  7. VITAMIN D3 [Concomitant]
     Active Substance: CHOLECALCIFEROL
     Dosage: 2000 IU, 1X/DAY
     Route: 048
  8. COZAAR [Concomitant]
     Active Substance: LOSARTAN POTASSIUM
     Dosage: 100 MG, 1X/DAY
     Route: 048
  9. METOPROLOL. [Concomitant]
     Active Substance: METOPROLOL
     Indication: CARDIAC DISORDER
     Dosage: 150 MG, DAILY [50 MG; THREE A DAY]
  10. TYLENOL [Concomitant]
     Active Substance: ACETAMINOPHEN
     Indication: PAIN
     Dosage: 650 MG, AS NEEDED (325 MG; TAKE 2 TABLETS BY MOUTH EVERY 4 HOURS AS NEEDED)
     Route: 048
  11. LANOXIN [Concomitant]
     Active Substance: DIGOXIN
     Dosage: 125 UG, ALTERNATE DAY
     Route: 048
  12. LOPRESSOR [Concomitant]
     Active Substance: METOPROLOL TARTRATE
     Dosage: 100 MG, 2X/DAY
     Route: 048
  13. VITAMIN B [Concomitant]
     Active Substance: VITAMIN B
     Dosage: UNK
  14. CALCIUM CARBONATE. [Concomitant]
     Active Substance: CALCIUM CARBONATE
     Dosage: 500 MG, 2X/DAY
     Route: 048
  15. CALCIUM [Concomitant]
     Active Substance: CALCIUM
     Dosage: 1250 MG, UNK
  16. FOLIC ACID. [Concomitant]
     Active Substance: FOLIC ACID
     Dosage: 1 MG, 1X/DAY
     Route: 048
  17. VITAMIN D [Concomitant]
     Active Substance: CHOLECALCIFEROL
     Dosage: UNK
  18. DIGOXIN. [Concomitant]
     Active Substance: DIGOXIN
     Dosage: UNK
  19. TIKOSYN [Suspect]
     Active Substance: DOFETILIDE
     Dosage: 0.25 MG, 2X/DAY (0.125 MG, TWO CAPSULES, EVERY 12 HOURS)
  20. PRED FORTE [Concomitant]
     Active Substance: PREDNISOLONE ACETATE
     Dosage: 1 GTT, WEEKLY (EVERY SUNDAY; 1 DROP IN RIGHT EYE)
     Route: 047
  21. TYLENOL [Concomitant]
     Active Substance: ACETAMINOPHEN
     Indication: PYREXIA
  22. NORCO [Concomitant]
     Active Substance: ACETAMINOPHEN\HYDROCODONE BITARTRATE
     Dosage: 0.5 DF, AS NEEDED (HYDROCODONE BITARTRATE 5 MG, ACETAMINOPHEN 325 MG); EVERY 6 HOURS
     Route: 048
  23. VITAMIN B12 [Concomitant]
     Active Substance: CYANOCOBALAMIN
     Dosage: 1000 UG, 1X/DAY
     Route: 048

REACTIONS (1)
  - Drug ineffective [Unknown]
